FAERS Safety Report 5717323-6 (Version None)
Quarter: 2008Q2

REPORT INFORMATION
  Report Type: 
  Country: None (occurrence: None)
  Receive Date: 20080424
  Receipt Date: 20080424
  Transmission Date: 20081010
  Serious: Yes (Other)
  Sender: FDA-Public Use
  Company Number: None

PATIENT
  Age: 45 Year
  Sex: Female
  Weight: 58.9676 kg

DRUGS (3)
  1. VENLAFAXIINE HCL [Suspect]
     Indication: DEPRESSION
     Dosage: 75 MG ONCE NIGHTLY PO
     Route: 048
     Dates: start: 20080414, end: 20080421
  2. SUDAFED OTC [Concomitant]
  3. ZYRTEC OTC [Concomitant]

REACTIONS (12)
  - ABNORMAL DREAMS [None]
  - AFFECT LABILITY [None]
  - ANXIETY [None]
  - DISTURBANCE IN ATTENTION [None]
  - DIZZINESS [None]
  - DRUG WITHDRAWAL SYNDROME [None]
  - HEADACHE [None]
  - NIGHT SWEATS [None]
  - PARAESTHESIA [None]
  - TINNITUS [None]
  - TREMOR [None]
  - VERTIGO [None]
